FAERS Safety Report 23225095 (Version 3)
Quarter: 2023Q4

REPORT INFORMATION
  Report Type: Spontaneous
  Country: NL (occurrence: None)
  Receive Date: 20231124
  Receipt Date: 20231229
  Transmission Date: 20240110
  Serious: Yes (Death)
  Sender: FDA-Public Use
  Company Number: NL-ROCHE-3462966

PATIENT
  Age: 22 Year
  Sex: Female
  Weight: 37 kg

DRUGS (2)
  1. EVRYSDI [Suspect]
     Active Substance: RISDIPLAM
     Indication: Spinal muscular atrophy
     Dosage: ON 18/NOV/2023, SHE RECEIVED LAST DOSE OF RISDIPLAM.
     Route: 048
     Dates: start: 20210504
  2. ACETAMINOPHEN [Suspect]
     Active Substance: ACETAMINOPHEN
     Indication: Product used for unknown indication
     Dosage: FOR 5 DAYS
     Route: 048

REACTIONS (1)
  - Acute hepatic failure [Fatal]

NARRATIVE: CASE EVENT DATE: 20231118
